FAERS Safety Report 15831150 (Version 11)
Quarter: 2020Q3

REPORT INFORMATION
  Report Type: Report from Study
  Country: US (occurrence: US)
  Receive Date: 20190116
  Receipt Date: 20200902
  Transmission Date: 20201102
  Serious: Yes (Hospitalization, Other)
  Sender: FDA-Public Use
  Company Number: US-PFIZER INC-2019019972

PATIENT
  Age: 92 Year
  Sex: Female

DRUGS (3)
  1. MUCINEX [Concomitant]
     Active Substance: GUAIFENESIN
     Dosage: UNK
  2. FULVESTRANT. [Concomitant]
     Active Substance: FULVESTRANT
     Dosage: UNK
  3. IBRANCE [Suspect]
     Active Substance: PALBOCICLIB
     Indication: BREAST CANCER FEMALE
     Dosage: 75 MG, CYCLIC (ONCE DAILY, 21 DAYS ON/7 DAYS OFF)
     Route: 048
     Dates: start: 20190107

REACTIONS (17)
  - Peripheral coldness [Recovering/Resolving]
  - Asthenia [Unknown]
  - Pruritus [Recovered/Resolved]
  - Full blood count decreased [Unknown]
  - Sensory loss [Recovered/Resolved]
  - Fatigue [Recovering/Resolving]
  - Pain [Unknown]
  - Urinary tract infection [Recovered/Resolved]
  - Anxiety [Not Recovered/Not Resolved]
  - Pain in extremity [Recovered/Resolved]
  - Haemorrhage [Not Recovered/Not Resolved]
  - Bronchitis [Recovered/Resolved]
  - Abdominal discomfort [Recovered/Resolved]
  - Anaemia [Recovered/Resolved]
  - Epistaxis [Unknown]
  - Faeces soft [Recovered/Resolved]
  - Oral pain [Recovered/Resolved]

NARRATIVE: CASE EVENT DATE: 2019
